FAERS Safety Report 5145628-9 (Version None)
Quarter: 2006Q4

REPORT INFORMATION
  Report Type: 
  Country: None (occurrence: None)
  Receive Date: 20061101
  Receipt Date: 20061101
  Transmission Date: 20070319
  Serious: Yes (Hospitalization)
  Sender: FDA-Public Use
  Company Number: None

PATIENT
  Age: 63 Year
  Sex: Female
  Weight: 49 kg

DRUGS (2)
  1. IRESSA [Suspect]
     Indication: LUNG NEOPLASM MALIGNANT
     Dosage: 250MG DAILY P.O
     Route: 048
     Dates: start: 20051103, end: 20051229
  2. RADIATION [Suspect]
     Indication: LUNG NEOPLASM MALIGNANT
     Dosage: 4.2GY TIMES 12FRACTION
     Dates: start: 20051108, end: 20051123

REACTIONS (10)
  - DISEASE PROGRESSION [None]
  - DIVERTICULUM OESOPHAGEAL [None]
  - DYSPHAGIA [None]
  - HIATUS HERNIA [None]
  - NAUSEA [None]
  - ODYNOPHAGIA [None]
  - RADIATION INJURY [None]
  - REFUSAL OF TREATMENT BY PATIENT [None]
  - ULCER [None]
  - VOMITING [None]
